FAERS Safety Report 4457877-3 (Version None)
Quarter: 2004Q3

REPORT INFORMATION
  Report Type: 
  Country: None (occurrence: None)
  Receive Date: 20040917
  Receipt Date: 20040712
  Transmission Date: 20050211
  Serious: Yes (Hospitalization)
  Sender: FDA-Public Use
  Company Number: US-JNJFOC-20040703802

PATIENT
  Age: 26 Year
  Sex: Female

DRUGS (4)
  1. TOPAMAX [Suspect]
     Indication: BIPOLAR DISORDER
     Dosage: SEE IMAGE
  2. . [Concomitant]
  3. SEROQUEL [Concomitant]
  4. LEXAPRO [Concomitant]

REACTIONS (1)
  - DEPRESSION [None]
